FAERS Safety Report 20415185 (Version 9)
Quarter: 2022Q2

REPORT INFORMATION
  Report Type: Spontaneous
  Country: GB (occurrence: GB)
  Receive Date: 20220202
  Receipt Date: 20220615
  Transmission Date: 20220720
  Serious: Yes (Other)
  Sender: FDA-Public Use
  Company Number: None

PATIENT

DRUGS (343)
  1. ACETAMINOPHEN [Suspect]
     Active Substance: ACETAMINOPHEN
     Indication: Ill-defined disorder
     Dosage: 20 MILLIGRAM, BID, SOLUBLE TABLET
     Route: 065
     Dates: start: 2006
  2. ACETAMINOPHEN [Suspect]
     Active Substance: ACETAMINOPHEN
     Indication: Pneumonia
     Dosage: 50 ML (50 UNITS/50ML), SOLUBLE TABLET
     Route: 042
     Dates: start: 2006
  3. ACETAMINOPHEN [Suspect]
     Active Substance: ACETAMINOPHEN
     Dosage: 50 UNITS/VIAL
     Route: 065
     Dates: start: 2006
  4. ALBUTEROL [Suspect]
     Active Substance: ALBUTEROL
     Indication: Ill-defined disorder
     Dosage: 1 DOSAGE FORM (NEBULISER)
     Route: 065
  5. ALBUTEROL [Suspect]
     Active Substance: ALBUTEROL
     Dosage: UNK
     Route: 065
  6. ALBUTEROL [Suspect]
     Active Substance: ALBUTEROL
     Dosage: UNK
     Route: 065
     Dates: start: 2006
  7. ALBUTEROL [Suspect]
     Active Substance: ALBUTEROL
     Dosage: 1 DOSAGE FORM, PRN (INHALATION POWDER)
     Route: 065
     Dates: start: 2006
  8. ALBUTEROL [Suspect]
     Active Substance: ALBUTEROL
     Dosage: UNK, PRN
     Route: 065
  9. ALBUTEROL [Suspect]
     Active Substance: ALBUTEROL
     Dosage: 1 DOSAGE FORM, PRN
     Route: 065
     Dates: start: 2006
  10. ENOXAPARIN SODIUM [Suspect]
     Active Substance: ENOXAPARIN SODIUM
     Indication: Pneumonia
     Dosage: 20 MILLIGRAM, QD
     Route: 058
  11. ENOXAPARIN SODIUM [Suspect]
     Active Substance: ENOXAPARIN SODIUM
     Indication: Ill-defined disorder
     Dosage: 20 MILLIGRAM, QD
     Route: 058
  12. ENOXAPARIN SODIUM [Suspect]
     Active Substance: ENOXAPARIN SODIUM
     Dosage: 20 MILLIGRAM, QD
     Route: 065
  13. ENOXAPARIN SODIUM [Suspect]
     Active Substance: ENOXAPARIN SODIUM
     Dosage: 20 MILLIGRAM, QD
     Route: 058
     Dates: start: 2006
  14. ENOXAPARIN SODIUM [Suspect]
     Active Substance: ENOXAPARIN SODIUM
     Dosage: 20 MILLIGRAM, QD
     Route: 058
     Dates: start: 2006
  15. TRICLOSAN [Suspect]
     Active Substance: TRICLOSAN
     Indication: Ill-defined disorder
     Dosage: UNK,
     Route: 003
  16. TRICLOSAN [Suspect]
     Active Substance: TRICLOSAN
     Indication: Pneumonia
     Dosage: UNK, CUTANEOUS SOLUTION
     Route: 065
  17. TRICLOSAN [Suspect]
     Active Substance: TRICLOSAN
     Dosage: 1 GRAM, QD
     Route: 042
  18. TRICLOSAN [Suspect]
     Active Substance: TRICLOSAN
     Dosage: 24 DOSAGE FORM, CUTANEOUS SOLUTION
     Route: 065
     Dates: start: 2006
  19. LANSOPRAZOLE [Suspect]
     Active Substance: LANSOPRAZOLE
     Indication: Ill-defined disorder
     Dosage: 3 GRAM, EVERY HOUR, CAPSULE
     Route: 042
  20. LANSOPRAZOLE [Suspect]
     Active Substance: LANSOPRAZOLE
     Indication: Pneumonia
     Dosage: 3 MILLIGRAM
     Route: 065
  21. LANSOPRAZOLE [Suspect]
     Active Substance: LANSOPRAZOLE
     Dosage: 30 MILLIGRAM, QD
     Route: 065
     Dates: start: 2006
  22. LANSOPRAZOLE [Suspect]
     Active Substance: LANSOPRAZOLE
     Dosage: 10 MILLILITER, UNK
     Route: 065
     Dates: start: 2006
  23. SILVER SULFADIAZINE [Suspect]
     Active Substance: SILVER SULFADIAZINE
     Indication: Ill-defined disorder
     Dosage: UNK
     Route: 061
     Dates: start: 2006
  24. SILVER SULFADIAZINE [Suspect]
     Active Substance: SILVER SULFADIAZINE
     Dosage: UNK
     Route: 061
     Dates: start: 2006
  25. FUROSEMIDE [Suspect]
     Active Substance: FUROSEMIDE
     Indication: Ill-defined disorder
     Dosage: 20 MILLIGRAM, QD
     Route: 048
  26. FUROSEMIDE [Suspect]
     Active Substance: FUROSEMIDE
     Indication: Pneumonia
     Dosage: UNK
     Route: 042
  27. FUROSEMIDE [Suspect]
     Active Substance: FUROSEMIDE
     Dosage: 20 MILLIGRAM, BID (2 XDAILY)
     Route: 042
     Dates: start: 2006
  28. FUROSEMIDE [Suspect]
     Active Substance: FUROSEMIDE
     Dosage: 20 MILLIGRAM, BID (2 XDAILY)
     Route: 042
     Dates: start: 2006
  29. FUROSEMIDE [Suspect]
     Active Substance: FUROSEMIDE
     Dosage: 20 MILLIGRAM, BID
     Route: 042
     Dates: start: 2006
  30. FUROSEMIDE [Suspect]
     Active Substance: FUROSEMIDE
     Dosage: 20 MILLIGRAM, QD
     Route: 048
     Dates: start: 2006
  31. FUROSEMIDE [Suspect]
     Active Substance: FUROSEMIDE
     Dosage: 40 MILLIGRAM, QD
     Route: 042
  32. LORAZEPAM [Suspect]
     Active Substance: LORAZEPAM
     Indication: Product used for unknown indication
     Dosage: 2 MILLIGRAM, QD
     Route: 065
  33. LORAZEPAM [Suspect]
     Active Substance: LORAZEPAM
     Indication: Pneumonia
     Dosage: 2 MILLIGRAM, QD
     Route: 065
  34. LORAZEPAM [Suspect]
     Active Substance: LORAZEPAM
     Indication: Ill-defined disorder
     Dosage: UNK
     Route: 065
  35. LORAZEPAM [Suspect]
     Active Substance: LORAZEPAM
     Dosage: 2 GRAM, QD
     Route: 065
  36. LORAZEPAM [Suspect]
     Active Substance: LORAZEPAM
     Dosage: (1-2 MILLIGRAM, ONCE ONLY)
     Route: 065
     Dates: start: 2006
  37. LORAZEPAM [Suspect]
     Active Substance: LORAZEPAM
     Dosage: (1-2 MILLIGRAM, ONCE ONLY)
     Route: 065
     Dates: start: 2006
  38. AMOXICILLIN [Suspect]
     Active Substance: AMOXICILLIN
     Indication: Ill-defined disorder
     Dosage: 250 MILLIGRAM, QD
     Route: 042
  39. AMOXICILLIN [Suspect]
     Active Substance: AMOXICILLIN
     Indication: Pneumonia
     Dosage: 750 MILLIGRAM, TID
     Route: 048
  40. AMOXICILLIN [Suspect]
     Active Substance: AMOXICILLIN
     Dosage: 1 GRAM, QD
     Route: 042
  41. AMOXICILLIN [Suspect]
     Active Substance: AMOXICILLIN
     Dosage: 1 GRAM, QD
     Route: 042
  42. AMOXICILLIN [Suspect]
     Active Substance: AMOXICILLIN
     Dosage: 3 GRAM, TID
     Route: 042
  43. AMOXICILLIN [Suspect]
     Active Substance: AMOXICILLIN
     Dosage: 3 GRAM, (3 G, QD, 1 G 3/1 DAYS)
     Route: 042
  44. AMOXICILLIN [Suspect]
     Active Substance: AMOXICILLIN
     Dosage: 3 GRAM, QD (1 GRAM, TID)
     Route: 042
  45. AMOXICILLIN [Suspect]
     Active Substance: AMOXICILLIN
     Dosage: 250 MILLIGRAM, UNK, CAPSULE
     Route: 048
     Dates: start: 20060913
  46. AMOXICILLIN [Suspect]
     Active Substance: AMOXICILLIN
     Dosage: 1 GRAM, TID (1 G, TID (3 G), CAPSULE, HARD
     Route: 042
     Dates: start: 20060913
  47. AMOXICILLIN [Suspect]
     Active Substance: AMOXICILLIN
     Dosage: 1 G, TIME INTERVAL
     Route: 042
     Dates: start: 20060913
  48. AMOXICILLIN [Suspect]
     Active Substance: AMOXICILLIN
     Dosage: 3 G, QD (1 G,TID (DAILY DOSE: 3 GRAM(S), 1 G, TID), (0.33 DAY)
     Route: 042
     Dates: start: 20060913
  49. AMOXICILLIN [Suspect]
     Active Substance: AMOXICILLIN
     Dosage: 250 MILLIGRAM, TID
     Route: 048
     Dates: start: 20060913
  50. AMOXICILLIN [Suspect]
     Active Substance: AMOXICILLIN
     Dosage: 250 MILLIGRAM, TID
     Route: 048
     Dates: start: 20060913
  51. AMOXICILLIN [Suspect]
     Active Substance: AMOXICILLIN
     Dosage: 1 GRAM, TID
     Route: 042
     Dates: start: 20060913
  52. AMOXICILLIN [Suspect]
     Active Substance: AMOXICILLIN
     Dosage: 3 GRAM, QD (1 G, TID)
     Route: 042
     Dates: start: 20060913
  53. AMOXICILLIN [Suspect]
     Active Substance: AMOXICILLIN
     Dosage: 750 MILLIGRAM, QD, CAPSULE
     Route: 048
     Dates: start: 20060913
  54. AMOXICILLIN [Suspect]
     Active Substance: AMOXICILLIN
     Dosage: 250 MILLIGRAM, TID, CAPSULE
     Route: 048
     Dates: start: 20060913
  55. AMOXICILLIN [Suspect]
     Active Substance: AMOXICILLIN
     Dosage: UNK
     Route: 065
  56. AMOXICILLIN [Suspect]
     Active Substance: AMOXICILLIN
     Dosage: 1 GRAM, TID
     Route: 042
  57. AMOXICILLIN [Suspect]
     Active Substance: AMOXICILLIN
     Dosage: 1 GRAM, EVERY 8 HOURS
     Route: 042
  58. AMOXICILLIN [Suspect]
     Active Substance: AMOXICILLIN
     Dosage: 1 GRAM, TID
     Route: 042
     Dates: start: 20060913
  59. AMOXICILLIN [Suspect]
     Active Substance: AMOXICILLIN
     Dosage: 250 MILLIGRAM, 3 TIMES A DAY
     Route: 048
     Dates: start: 20060913
  60. AMOXICILLIN [Suspect]
     Active Substance: AMOXICILLIN
     Dosage: 1 GRAM, ONCE A DAY
     Route: 042
  61. AMOXICILLIN [Suspect]
     Active Substance: AMOXICILLIN
     Dosage: 750 MILLIGRAM, QD
     Route: 048
     Dates: start: 20060913
  62. AMOXICILLIN [Suspect]
     Active Substance: AMOXICILLIN
     Dosage: 250 MILLIGRAM, QD
     Route: 048
     Dates: start: 20060913
  63. DOBUTAMINE [Suspect]
     Active Substance: DOBUTAMINE HYDROCHLORIDE
     Indication: Ill-defined disorder
     Dosage: UNK
     Route: 041
     Dates: start: 2006
  64. DOBUTAMINE [Suspect]
     Active Substance: DOBUTAMINE HYDROCHLORIDE
     Dosage: UNK
     Route: 065
     Dates: start: 2006
  65. INSULIN HUMAN [Suspect]
     Active Substance: INSULIN HUMAN
     Indication: Pneumonia
     Dosage: UNK (SOLUTION FOR INFUSION)
     Route: 065
  66. INSULIN HUMAN [Suspect]
     Active Substance: INSULIN HUMAN
     Indication: Toxic epidermal necrolysis
     Dosage: UNK (INFUSION)
     Route: 042
  67. INSULIN HUMAN [Suspect]
     Active Substance: INSULIN HUMAN
     Dosage: UNK, SOLUTION FOR INFUSION
     Route: 065
  68. INSULIN HUMAN [Suspect]
     Active Substance: INSULIN HUMAN
     Dosage: UNK (SOLUTION FOR INFUSION)
     Route: 042
     Dates: start: 2006
  69. INSULIN HUMAN [Suspect]
     Active Substance: INSULIN HUMAN
     Dosage: 50 UNITS/50ML, INTRAVENOUS INFUSION
     Route: 042
     Dates: start: 2006
  70. INSULIN HUMAN [Suspect]
     Active Substance: INSULIN HUMAN
     Dosage: UNK
     Route: 042
  71. SODIUM CHLORIDE [Suspect]
     Active Substance: SODIUM CHLORIDE
     Indication: Ill-defined disorder
     Dosage: 0.9 PERCENT, QD
     Route: 042
     Dates: start: 2006
  72. SODIUM CHLORIDE [Suspect]
     Active Substance: SODIUM CHLORIDE
     Indication: Pneumonia
     Dosage: 1 PERCENT, QD
     Route: 042
     Dates: start: 2006
  73. ALFENTANIL [Suspect]
     Active Substance: ALFENTANIL
     Indication: Ill-defined disorder
     Dosage: UNK, INFUSION
     Route: 042
  74. ALFENTANIL [Suspect]
     Active Substance: ALFENTANIL
     Indication: Pneumonia
     Dosage: UNK, INFUSION
     Route: 042
  75. ALFENTANIL [Suspect]
     Active Substance: ALFENTANIL
     Dosage: UNK
     Route: 065
  76. ALFENTANIL [Suspect]
     Active Substance: ALFENTANIL
     Dosage: UNK
     Route: 065
  77. ALFENTANIL [Suspect]
     Active Substance: ALFENTANIL
     Dosage: UNK
     Route: 065
  78. ALFENTANIL [Suspect]
     Active Substance: ALFENTANIL
     Dosage: UNK
     Route: 042
  79. ALFENTANIL [Suspect]
     Active Substance: ALFENTANIL
     Dosage: UNK, INJECTION
     Route: 042
     Dates: start: 2006
  80. ALFENTANIL [Suspect]
     Active Substance: ALFENTANIL
     Dosage: UNK
     Route: 042
     Dates: start: 2006
  81. ALFENTANIL [Suspect]
     Active Substance: ALFENTANIL
     Dosage: UNK
     Route: 042
     Dates: start: 2006
  82. ALFENTANIL [Suspect]
     Active Substance: ALFENTANIL
     Dosage: UNK
     Route: 042
     Dates: start: 2006
  83. ALFENTANIL [Suspect]
     Active Substance: ALFENTANIL
     Dosage: 120 DOSAGE FORM, INFUSION
     Route: 042
     Dates: start: 2006
  84. ALFENTANIL [Suspect]
     Active Substance: ALFENTANIL
     Dosage: 120 DOSAGE FORM, INFUSION
     Route: 042
     Dates: start: 2006
  85. ALFENTANIL [Suspect]
     Active Substance: ALFENTANIL
     Dosage: UNK
     Route: 042
     Dates: start: 2006
  86. OMEPRAZOLE [Suspect]
     Active Substance: OMEPRAZOLE
     Indication: Pneumonia
     Dosage: 40 MILLIGRAM, UNK
     Route: 042
  87. OMEPRAZOLE [Suspect]
     Active Substance: OMEPRAZOLE
     Dosage: 40 MILLIGRAM, UNK
     Route: 042
  88. OMEPRAZOLE [Suspect]
     Active Substance: OMEPRAZOLE
     Dosage: 40 MILLIGRAM, QD ((40 MG,UNK (DAILY DOSE: 40 MILLIGRAM(S))
     Route: 042
     Dates: start: 2006
  89. OMEPRAZOLE [Suspect]
     Active Substance: OMEPRAZOLE
     Dosage: 40 MILLIGRAM, UNK
     Route: 042
     Dates: start: 2006
  90. CALCIUM GLUCONATE [Suspect]
     Active Substance: CALCIUM GLUCONATE
     Indication: Pneumonia
     Dosage: UNK
     Route: 065
  91. CALCIUM GLUCONATE [Suspect]
     Active Substance: CALCIUM GLUCONATE
     Indication: Product used for unknown indication
     Dosage: 10 MILLILITER, QD
     Route: 042
     Dates: start: 2006
  92. CALCIUM GLUCONATE [Suspect]
     Active Substance: CALCIUM GLUCONATE
     Dosage: 10 MILLILITER, QD
     Route: 042
     Dates: start: 2006
  93. CALCIUM GLUCONATE [Suspect]
     Active Substance: CALCIUM GLUCONATE
     Dosage: 10 MILLILITER, UNK
     Route: 042
     Dates: start: 2006
  94. CALCIUM GLUCONATE [Suspect]
     Active Substance: CALCIUM GLUCONATE
     Dosage: 10 MILLILITER, QD
     Route: 042
     Dates: start: 2006
  95. PROPOFOL [Suspect]
     Active Substance: PROPOFOL
     Indication: Product used for unknown indication
     Dosage: UNK
     Route: 042
     Dates: start: 2006
  96. FRAGMIN [Suspect]
     Active Substance: DALTEPARIN SODIUM
     Indication: Ill-defined disorder
     Dosage: UNK
     Route: 065
  97. FRAGMIN [Suspect]
     Active Substance: DALTEPARIN SODIUM
     Indication: Pneumonia
     Dosage: 2500 INTERNATIONAL UNIT, QD
     Route: 058
  98. FRAGMIN [Suspect]
     Active Substance: DALTEPARIN SODIUM
     Dosage: 200 INTERNATIONAL UNIT, 2500 IU DAILY
     Route: 058
  99. FRAGMIN [Suspect]
     Active Substance: DALTEPARIN SODIUM
     Dosage: 2500 INTERNATIONAL UNIT, QD
     Route: 058
  100. FRAGMIN [Suspect]
     Active Substance: DALTEPARIN SODIUM
     Dosage: 200 INTERNATIONAL UNIT, QD
     Route: 058
     Dates: start: 2006
  101. FRAGMIN [Suspect]
     Active Substance: DALTEPARIN SODIUM
     Dosage: 200 INTERNATIONAL UNIT, QD
     Route: 058
     Dates: start: 2006
  102. FRAGMIN [Suspect]
     Active Substance: DALTEPARIN SODIUM
     Dosage: 2500 INTERNATIONAL UNIT, QD
     Route: 058
     Dates: start: 2006
  103. FRAGMIN [Suspect]
     Active Substance: DALTEPARIN SODIUM
     Dosage: 2500 INTERNATIONAL UNIT, QD
     Route: 058
     Dates: start: 2006
  104. MAGNESIUM SULFATE [Suspect]
     Active Substance: MAGNESIUM SULFATE
     Indication: Ill-defined disorder
     Dosage: 10ML / 50%, 8 MMOL / 50ML
     Route: 061
  105. MAGNESIUM SULFATE [Suspect]
     Active Substance: MAGNESIUM SULFATE
     Indication: Pneumonia
     Dosage: 10ML / 50%, 8 MMOL / 50ML
     Route: 065
     Dates: start: 2006
  106. MAGNESIUM SULFATE [Suspect]
     Active Substance: MAGNESIUM SULFATE
     Dosage: 10 MILLILITER, INFUSION 10 ML/50% 8 MMOLS/50ML
     Route: 065
     Dates: start: 2006
  107. VITAMIN K1 [Suspect]
     Active Substance: PHYTONADIONE
     Indication: Pneumonia
     Dosage: UNK
     Route: 065
  108. VITAMIN K1 [Suspect]
     Active Substance: PHYTONADIONE
     Indication: Ill-defined disorder
     Dosage: UNK
     Route: 065
     Dates: start: 2006
  109. VITAMIN K1 [Suspect]
     Active Substance: PHYTONADIONE
     Dosage: UNK (50 UNITS/50ML)
     Route: 042
     Dates: start: 2006
  110. FLUCONAZOLE [Suspect]
     Active Substance: FLUCONAZOLE
     Indication: Ill-defined disorder
     Dosage: UNK
     Route: 065
  111. FLUCONAZOLE [Suspect]
     Active Substance: FLUCONAZOLE
     Indication: Pneumonia
     Dosage: UNK
     Route: 065
  112. FLUCONAZOLE [Suspect]
     Active Substance: FLUCONAZOLE
     Dosage: 200 MILLIGRAM, QD
     Route: 042
  113. FLUCONAZOLE [Suspect]
     Active Substance: FLUCONAZOLE
     Dosage: 20 MILLIGRAM, QD
     Route: 065
  114. FLUCONAZOLE [Suspect]
     Active Substance: FLUCONAZOLE
     Dosage: 200 MILLIGRAM, QD
     Route: 042
     Dates: start: 2006
  115. FLUCONAZOLE [Suspect]
     Active Substance: FLUCONAZOLE
     Dosage: 200 MILLIGRAM, QD
     Route: 065
     Dates: start: 2006
  116. FLUCONAZOLE [Suspect]
     Active Substance: FLUCONAZOLE
     Dosage: 200 MILLIGRAM, QD
     Route: 042
     Dates: start: 2006
  117. INNOHEP [Suspect]
     Active Substance: TINZAPARIN SODIUM
     Indication: Pneumonia
     Dosage: 3.5 MILLILITER, QD
     Route: 065
  118. INNOHEP [Suspect]
     Active Substance: TINZAPARIN SODIUM
     Indication: Ill-defined disorder
     Dosage: 4 MILLILITER, QD
     Route: 065
  119. INNOHEP [Suspect]
     Active Substance: TINZAPARIN SODIUM
     Dosage: 3500 MICROGRAM, QD (DAILY)
     Route: 065
     Dates: start: 2006
  120. INNOHEP [Suspect]
     Active Substance: TINZAPARIN SODIUM
     Dosage: 3500 DOSAGE FORM, QD
     Route: 065
     Dates: start: 2006
  121. LACTULOSE [Suspect]
     Active Substance: LACTULOSE
     Indication: Ill-defined disorder
     Dosage: 1 MILLILITER, QD
     Route: 065
  122. LACTULOSE [Suspect]
     Active Substance: LACTULOSE
     Indication: Pneumonia
     Dosage: 10 MILLILITER, QD
     Route: 065
  123. LACTULOSE [Suspect]
     Active Substance: LACTULOSE
     Dosage: 10 MILLILITER, UNK
     Route: 065
     Dates: start: 2006
  124. LACTULOSE [Suspect]
     Active Substance: LACTULOSE
     Dosage: 10 MILLILITER, UNK
     Route: 050
     Dates: start: 2006
  125. CALCIUM CHLORIDE [Suspect]
     Active Substance: CALCIUM CHLORIDE
     Indication: Ill-defined disorder
     Dosage: UNK
     Route: 065
  126. CALCIUM CHLORIDE [Suspect]
     Active Substance: CALCIUM CHLORIDE
     Indication: Pneumonia
     Dosage: UNK
     Route: 065
     Dates: start: 2006
  127. CALCIUM CHLORIDE [Suspect]
     Active Substance: CALCIUM CHLORIDE
     Dosage: 10 MILLILITER, QID
     Route: 065
     Dates: start: 2006
  128. BACTROBAN [Suspect]
     Active Substance: MUPIROCIN\MUPIROCIN CALCIUM
     Indication: Ill-defined disorder
     Dosage: UNK, 50 UNITS/50ML
     Route: 042
     Dates: start: 2006
  129. BACTROBAN [Suspect]
     Active Substance: MUPIROCIN\MUPIROCIN CALCIUM
     Indication: Pneumonia
     Dosage: UNK, (10ML/50% 8MMOLS/50MLS)
     Route: 065
     Dates: start: 2006
  130. BACTROBAN [Suspect]
     Active Substance: MUPIROCIN\MUPIROCIN CALCIUM
     Dosage: UNK, OINTMENT
     Route: 065
     Dates: start: 2006
  131. BACTROBAN [Suspect]
     Active Substance: MUPIROCIN\MUPIROCIN CALCIUM
     Dosage: UNK, OINTMENT
     Route: 065
     Dates: start: 2006
  132. BACTROBAN [Suspect]
     Active Substance: MUPIROCIN\MUPIROCIN CALCIUM
     Dosage: UNK, OINTMENT
     Route: 065
     Dates: start: 2006
  133. BACTROBAN [Suspect]
     Active Substance: MUPIROCIN\MUPIROCIN CALCIUM
     Dosage: UNK, (10ML/50% 8MMOLS/50MLS)
     Route: 065
     Dates: start: 2006
  134. SIMVASTATIN [Suspect]
     Active Substance: SIMVASTATIN
     Indication: Ill-defined disorder
     Dosage: 40 MILLIGRAM, BID, FILM-COATED TABLET
     Route: 042
     Dates: start: 2006
  135. CHLORPHENIRAMINE MALEATE [Suspect]
     Active Substance: CHLORPHENIRAMINE MALEATE
     Indication: Ill-defined disorder
     Dosage: 10 MILLIGRAM, QID
     Route: 042
  136. CHLORPHENIRAMINE MALEATE [Suspect]
     Active Substance: CHLORPHENIRAMINE MALEATE
     Indication: Pneumonia
     Dosage: 10 MILLIGRAM, QD
     Route: 042
  137. CHLORPHENIRAMINE MALEATE [Suspect]
     Active Substance: CHLORPHENIRAMINE MALEATE
     Dosage: UNK
     Route: 065
  138. CHLORPHENIRAMINE MALEATE [Suspect]
     Active Substance: CHLORPHENIRAMINE MALEATE
     Dosage: 10 MILLIGRAM, QD
     Route: 042
     Dates: start: 2006
  139. CHLORPHENIRAMINE MALEATE [Suspect]
     Active Substance: CHLORPHENIRAMINE MALEATE
     Dosage: 40 MILLIGRAM, QD
     Route: 042
  140. CHLORPHENIRAMINE MALEATE [Suspect]
     Active Substance: CHLORPHENIRAMINE MALEATE
     Dosage: 10 MILLIGRAM, QID
     Route: 042
     Dates: start: 2006
  141. SODIUM BICARBONATE [Suspect]
     Active Substance: SODIUM BICARBONATE
     Indication: Pneumonia
     Dosage: 100 MILLIGRAM, EVERY HOUR
     Route: 042
     Dates: start: 2006
  142. SODIUM BICARBONATE [Suspect]
     Active Substance: SODIUM BICARBONATE
     Indication: Ill-defined disorder
  143. ROCEPHIN [Suspect]
     Active Substance: CEFTRIAXONE SODIUM
     Indication: Ill-defined disorder
     Dosage: 2 MILLIGRAM, QD
     Route: 042
     Dates: start: 2006
  144. HEPARIN CALCIUM [Suspect]
     Active Substance: HEPARIN CALCIUM
     Indication: Ill-defined disorder
     Dosage: UNK
     Route: 065
  145. HEPARIN CALCIUM [Suspect]
     Active Substance: HEPARIN CALCIUM
     Dosage: UNK
     Route: 065
     Dates: start: 2006
  146. POTASSIUM CHLORIDE [Suspect]
     Active Substance: POTASSIUM CHLORIDE
     Indication: Pneumonia
     Dosage: 2 DOSAGE FORM, QD
     Route: 065
     Dates: start: 2006
  147. POTASSIUM CHLORIDE [Suspect]
     Active Substance: POTASSIUM CHLORIDE
     Indication: Ill-defined disorder
     Dosage: 6 DOSAGE FORM, QD
     Route: 061
     Dates: start: 2006
  148. POTASSIUM CHLORIDE [Suspect]
     Active Substance: POTASSIUM CHLORIDE
     Dosage: 6 DOSAGE FORM, QD, 2 DF 3 X DAILY
     Route: 065
     Dates: start: 2006
  149. CHLORPHENIRAMINE [Suspect]
     Active Substance: CHLORPHENIRAMINE
     Indication: Pneumonia
     Dosage: 10 MILLIGRAM, QD, 4 X DAILY
     Route: 042
     Dates: start: 2006
  150. CHLORPHENIRAMINE [Suspect]
     Active Substance: CHLORPHENIRAMINE
     Indication: Toxic epidermal necrolysis
     Dosage: 10 MILLIGRAM, QID
     Route: 042
     Dates: start: 2006
  151. CHLORPHENIRAMINE [Suspect]
     Active Substance: CHLORPHENIRAMINE
     Indication: Ill-defined disorder
     Dosage: 10 MILLIGRAM, QID (DAILY DOSE: 40 MG(S))
     Route: 042
     Dates: start: 2006
  152. CHLORPHENIRAMINE [Suspect]
     Active Substance: CHLORPHENIRAMINE
     Dosage: 10 MILLIGRAM, QD, 4 X DAILY
     Route: 042
     Dates: start: 2006
  153. CHLORPHENIRAMINE [Suspect]
     Active Substance: CHLORPHENIRAMINE
     Dosage: 10 MILLIGRAM, QID (DAILY DOSE: 40 MG(S))
     Route: 042
     Dates: start: 2006
  154. CHLORPHENIRAMINE [Suspect]
     Active Substance: CHLORPHENIRAMINE
     Dosage: 10 MILLIGRAM, QID (10 ML,Q6HR))
     Route: 042
     Dates: start: 2006
  155. CHLORPHENIRAMINE [Suspect]
     Active Substance: CHLORPHENIRAMINE
     Dosage: 10 MILLIGRAM, QD
     Route: 042
     Dates: start: 2006
  156. CHLORPHENIRAMINE [Suspect]
     Active Substance: CHLORPHENIRAMINE
     Dosage: 10 MILLIGRAM, QD
     Route: 042
  157. CHLORPHENIRAMINE [Suspect]
     Active Substance: CHLORPHENIRAMINE
     Dosage: 40 MILLIGRAM, QD (10 MG, QID)
     Route: 042
     Dates: start: 2006
  158. ENOXAPARIN [Suspect]
     Active Substance: ENOXAPARIN
     Indication: Product used for unknown indication
     Dosage: 20 MILLIGRAM, QD
     Route: 058
  159. ENOXAPARIN [Suspect]
     Active Substance: ENOXAPARIN
     Indication: Ill-defined disorder
     Dosage: UNK
     Route: 065
  160. ENOXAPARIN [Suspect]
     Active Substance: ENOXAPARIN
     Dosage: 20 MILLIGRAM, QD
     Route: 065
  161. ENOXAPARIN [Suspect]
     Active Substance: ENOXAPARIN
     Dosage: 20 MILLIGRAM, QD
     Route: 065
  162. ENOXAPARIN [Suspect]
     Active Substance: ENOXAPARIN
     Dosage: 20 MILLIGRAM, QD
     Route: 058
  163. ENOXAPARIN [Suspect]
     Active Substance: ENOXAPARIN
     Dosage: 20 MILLIGRAM, QD
     Route: 048
     Dates: start: 2006
  164. THIAMINE [Suspect]
     Active Substance: THIAMINE
     Indication: Ill-defined disorder
     Dosage: 100 MILLIGRAM, QD
     Route: 048
  165. THIAMINE [Suspect]
     Active Substance: THIAMINE
     Indication: Pneumonia
     Dosage: 100 MILLIGRAM, QD
     Route: 048
  166. THIAMINE [Suspect]
     Active Substance: THIAMINE
     Dosage: UNK
     Route: 065
  167. THIAMINE [Suspect]
     Active Substance: THIAMINE
     Dosage: 100 MILLIGRAM, QD
     Route: 048
  168. THIAMINE [Suspect]
     Active Substance: THIAMINE
     Dosage: 100 MILLIGRAM, TID
     Route: 048
  169. THIAMINE [Suspect]
     Active Substance: THIAMINE
     Dosage: 100 MILLIGRAM, QD
     Route: 048
     Dates: start: 2006
  170. POTASSIUM [Suspect]
     Active Substance: POTASSIUM
     Indication: Pneumonia
     Dosage: 6 DOSAGE FORM, QD
     Route: 065
  171. POTASSIUM [Suspect]
     Active Substance: POTASSIUM
     Dosage: 2 DOSAGE FORM, QD
     Route: 065
  172. POTASSIUM [Suspect]
     Active Substance: POTASSIUM
     Dosage: 2 DOSAGE FORM, TID
     Route: 061
     Dates: start: 2006
  173. HYDROCORTISONE [Suspect]
     Active Substance: HYDROCORTISONE
     Indication: Ill-defined disorder
     Dosage: 100 MILLIGRAM, QD
     Route: 042
     Dates: start: 2006
  174. HYDROCORTISONE [Suspect]
     Active Substance: HYDROCORTISONE
     Indication: Pneumonia
     Dosage: 100 MILLIGRAM, TOTAL
     Route: 042
     Dates: start: 2006
  175. HYDROCORTISONE [Suspect]
     Active Substance: HYDROCORTISONE
     Dosage: UNK
     Route: 065
     Dates: start: 2006
  176. CEFTRIAXONE [Suspect]
     Active Substance: CEFTRIAXONE
     Indication: Ill-defined disorder
     Dosage: UNK, POWDER FOR INJECTION
     Route: 065
  177. CEFTRIAXONE [Suspect]
     Active Substance: CEFTRIAXONE
     Indication: Pneumonia
     Dosage: 2 GRAM, POWDER FOR INJECTION
     Route: 042
  178. CEFTRIAXONE [Suspect]
     Active Substance: CEFTRIAXONE
     Dosage: 2 GRAM, POWDER AND SOLVENT FOR SOLUTION FOR INFUSION
     Route: 042
     Dates: start: 2006
  179. CEFTRIAXONE [Suspect]
     Active Substance: CEFTRIAXONE
     Dosage: 2 GRAM, QD, POWDER FOR INJECTION
     Route: 042
     Dates: start: 2006
  180. CEFTRIAXONE [Suspect]
     Active Substance: CEFTRIAXONE
     Dosage: 2 GRAM, POWDER FOR INJECTION
     Route: 042
     Dates: start: 2006
  181. TRICLOSAN [Suspect]
     Active Substance: TRICLOSAN
     Indication: Ill-defined disorder
     Dosage: UNK
     Route: 065
  182. TRICLOSAN [Suspect]
     Active Substance: TRICLOSAN
     Dosage: UNK
     Route: 065
     Dates: start: 2006
  183. TRICLOSAN [Suspect]
     Active Substance: TRICLOSAN
     Dosage: UNK
     Route: 065
     Dates: start: 2006
  184. TRICLOSAN [Suspect]
     Active Substance: TRICLOSAN
     Dosage: UNK
     Route: 065
     Dates: start: 2006
  185. HEPARIN SODIUM [Suspect]
     Active Substance: HEPARIN SODIUM
     Indication: Ill-defined disorder
     Dosage: 3500 MICROGRAM, QD
     Route: 065
  186. HEPARIN SODIUM [Suspect]
     Active Substance: HEPARIN SODIUM
     Indication: Product used for unknown indication
     Dosage: 3500 MICROGRAM, QD
     Route: 065
  187. HEPARIN SODIUM [Suspect]
     Active Substance: HEPARIN SODIUM
     Dosage: 3500 MICROGRAM, QD
     Route: 065
  188. CANRENOATE POTASSIUM [Suspect]
     Active Substance: CANRENOATE POTASSIUM
     Indication: Ill-defined disorder
     Dosage: UNK
     Route: 065
  189. ASPIRIN [Suspect]
     Active Substance: ASPIRIN
     Indication: Ill-defined disorder
     Dosage: UNK
     Route: 048
  190. ASPIRIN [Suspect]
     Active Substance: ASPIRIN
     Dosage: UNK, EFFERVESCENT TABLET
     Route: 048
  191. ANHYDROUS CITRIC ACID [Suspect]
     Active Substance: ANHYDROUS CITRIC ACID
     Indication: Product used for unknown indication
     Dosage: 100 MILLIGRAM, QD
     Route: 048
  192. ANHYDROUS CITRIC ACID [Suspect]
     Active Substance: ANHYDROUS CITRIC ACID
     Indication: Ill-defined disorder
     Dosage: 100 MILLIGRAM, QD
     Route: 048
  193. ANHYDROUS CITRIC ACID [Suspect]
     Active Substance: ANHYDROUS CITRIC ACID
     Dosage: 100 MILLIGRAM, QD
     Route: 048
     Dates: start: 2006
  194. ANHYDROUS CITRIC ACID [Suspect]
     Active Substance: ANHYDROUS CITRIC ACID
     Dosage: 100 MILLIGRAM, QD, EFFERVESCENT POWDER
     Route: 048
     Dates: start: 2006
  195. MUPIROCIN [Suspect]
     Active Substance: MUPIROCIN
     Indication: Ill-defined disorder
     Dosage: UNK
     Route: 065
  196. MUPIROCIN [Suspect]
     Active Substance: MUPIROCIN
     Indication: Pneumonia
     Dosage: UNK
     Route: 065
     Dates: start: 2006
  197. MUPIROCIN [Suspect]
     Active Substance: MUPIROCIN
     Dosage: UNK (10ML/50% 8MMOLS/50MLS)
     Route: 065
     Dates: start: 2006
  198. NOREPINEPHRINE [Suspect]
     Active Substance: NOREPINEPHRINE
     Indication: Ill-defined disorder
     Dosage: UNK
     Route: 065
  199. NOREPINEPHRINE [Suspect]
     Active Substance: NOREPINEPHRINE
     Indication: Pneumonia
     Dosage: UNK
     Route: 065
     Dates: start: 2006
  200. NOREPINEPHRINE [Suspect]
     Active Substance: NOREPINEPHRINE
     Dosage: UNK UNK, QD
     Route: 065
     Dates: start: 2006
  201. NOREPINEPHRINE [Suspect]
     Active Substance: NOREPINEPHRINE
     Dosage: UNK, QD
     Route: 065
     Dates: start: 2006
  202. NOREPINEPHRINE [Suspect]
     Active Substance: NOREPINEPHRINE
     Dosage: UNK
     Route: 065
     Dates: start: 2006
  203. ERYTHROMYCIN [Suspect]
     Active Substance: ERYTHROMYCIN
     Indication: Ill-defined disorder
     Dosage: 250 MILLIGRAM QD
     Route: 050
  204. ERYTHROMYCIN [Suspect]
     Active Substance: ERYTHROMYCIN
     Dosage: UNK
     Route: 065
  205. CIPROFLOXACIN [Suspect]
     Active Substance: CIPROFLOXACIN
     Indication: Ill-defined disorder
     Dosage: 400 MILLIGRAM, QD
     Route: 042
  206. CIPROFLOXACIN [Suspect]
     Active Substance: CIPROFLOXACIN
     Indication: Pneumonia
     Dosage: 400 MILLIGRAM, QD
     Route: 042
  207. CIPROFLOXACIN [Suspect]
     Active Substance: CIPROFLOXACIN
     Dosage: 400 MILLIGRAM, QD
     Route: 042
  208. CIPROFLOXACIN [Suspect]
     Active Substance: CIPROFLOXACIN
     Dosage: UNK
     Route: 065
  209. DALTEPARIN SODIUM [Suspect]
     Active Substance: DALTEPARIN SODIUM
     Indication: Product used for unknown indication
     Dosage: UNK, QD
     Route: 065
  210. DALTEPARIN SODIUM [Suspect]
     Active Substance: DALTEPARIN SODIUM
     Indication: Ill-defined disorder
     Dosage: 2500 INTERNATIONAL UNIT, QD
     Route: 065
     Dates: start: 2006
  211. DALTEPARIN SODIUM [Suspect]
     Active Substance: DALTEPARIN SODIUM
     Dosage: 200 INTERNATIONAL UNIT, QD
     Route: 065
     Dates: start: 2006
  212. DALTEPARIN SODIUM [Suspect]
     Active Substance: DALTEPARIN SODIUM
     Dosage: 2500 INTERNATIONAL UNIT
     Route: 058
     Dates: start: 2006
  213. DALTEPARIN SODIUM [Suspect]
     Active Substance: DALTEPARIN SODIUM
     Dosage: 2500 INTERNATIONAL UNIT
     Route: 058
     Dates: start: 2006
  214. DALTEPARIN SODIUM [Suspect]
     Active Substance: DALTEPARIN SODIUM
     Dosage: 2500 INTERNATIONAL UNIT
     Route: 058
     Dates: start: 2006
  215. MIDODRINE [Suspect]
     Active Substance: MIDODRINE
     Indication: Ill-defined disorder
     Dosage: UNK
     Route: 048
  216. MIDODRINE [Suspect]
     Active Substance: MIDODRINE
     Dosage: UNK
     Route: 065
  217. MIDODRINE [Suspect]
     Active Substance: MIDODRINE
     Dosage: UNK
     Route: 048
  218. HYDROCORTISONE HEMISUCCINATE ANHYDROUS [Suspect]
     Active Substance: HYDROCORTISONE HEMISUCCINATE ANHYDROUS
     Indication: Ill-defined disorder
     Dosage: 100 MILLIGRAM, TOTAL
     Route: 042
  219. HYDROCORTISONE HEMISUCCINATE ANHYDROUS [Suspect]
     Active Substance: HYDROCORTISONE HEMISUCCINATE ANHYDROUS
     Dosage: 100 MILLIGRAM, QD
     Route: 048
     Dates: start: 2006
  220. HYDROCORTISONE HEMISUCCINATE ANHYDROUS [Suspect]
     Active Substance: HYDROCORTISONE HEMISUCCINATE ANHYDROUS
     Dosage: 100 MILLIGRAM, TOTAL
     Route: 042
     Dates: start: 2006
  221. PHYTONADIONE [Suspect]
     Active Substance: PHYTONADIONE
     Indication: Ill-defined disorder
     Dosage: UNK
     Route: 065
  222. PHYTONADIONE [Suspect]
     Active Substance: PHYTONADIONE
     Indication: Pneumonia
     Dosage: UNK
     Route: 065
     Dates: start: 2006
  223. CALCIUM CHLORIDE HEXAHYDRATE [Suspect]
     Active Substance: CALCIUM CHLORIDE HEXAHYDRATE
     Indication: Pneumonia
     Dosage: UNK
     Route: 065
     Dates: start: 2006
  224. CITRIC ACID MONOHYDRATE\SODIUM BICARBONATE\TARTARIC ACID [Suspect]
     Active Substance: CITRIC ACID MONOHYDRATE\SODIUM BICARBONATE\TARTARIC ACID
     Indication: Pneumonia
     Dosage: 100 MILLIGRAM, QD
     Route: 048
     Dates: start: 2006
  225. HYDROCORTISONE SODIUM PHOSPHATE [Suspect]
     Active Substance: HYDROCORTISONE SODIUM PHOSPHATE
     Indication: Pneumonia
     Dosage: UNK
     Route: 065
  226. HYDROCORTISONE SODIUM PHOSPHATE [Suspect]
     Active Substance: HYDROCORTISONE SODIUM PHOSPHATE
     Indication: Ill-defined disorder
     Dosage: 100 MILLIGRAM, 1 DOSAGE TOTAL
     Route: 065
  227. HYDROCORTISONE SODIUM PHOSPHATE [Suspect]
     Active Substance: HYDROCORTISONE SODIUM PHOSPHATE
     Dosage: 100 MILLIGRAM
     Route: 048
  228. HYDROCORTISONE SODIUM PHOSPHATE [Suspect]
     Active Substance: HYDROCORTISONE SODIUM PHOSPHATE
     Dosage: 100 MILLIGRAM, TOTAL
     Route: 048
  229. HYDROCORTISONE SODIUM PHOSPHATE [Suspect]
     Active Substance: HYDROCORTISONE SODIUM PHOSPHATE
     Dosage: 100 MILLIGRAM, QD POWDER FOR SOLUTION FOR INJECTION
     Route: 042
  230. HYDROCORTISONE SODIUM PHOSPHATE [Suspect]
     Active Substance: HYDROCORTISONE SODIUM PHOSPHATE
     Dosage: 100 MILLIGRAM, UNK
     Route: 048
     Dates: start: 2006
  231. HYDROCORTISONE SODIUM PHOSPHATE [Suspect]
     Active Substance: HYDROCORTISONE SODIUM PHOSPHATE
     Dosage: 100 MILLIGRAM, TOTAL
     Route: 042
     Dates: start: 2006
  232. HYDROCORTISONE SODIUM PHOSPHATE [Suspect]
     Active Substance: HYDROCORTISONE SODIUM PHOSPHATE
     Dosage: 100 MILLIGRAM, QD
     Route: 048
     Dates: start: 2006
  233. HYDROCORTISONE SODIUM PHOSPHATE [Suspect]
     Active Substance: HYDROCORTISONE SODIUM PHOSPHATE
     Dosage: UNK
     Route: 065
     Dates: start: 2006
  234. HYDROCORTISONE SODIUM PHOSPHATE [Suspect]
     Active Substance: HYDROCORTISONE SODIUM PHOSPHATE
     Dosage: 100 MILLIGRAM, TOTAL
     Route: 042
     Dates: start: 2006
  235. GLUTAMIC ACID [Suspect]
     Active Substance: GLUTAMIC ACID
     Indication: Ill-defined disorder
     Dosage: UNK
     Route: 065
  236. GLUTAMIC ACID [Suspect]
     Active Substance: GLUTAMIC ACID
     Dosage: 10 MILLILITER, QD
     Route: 065
     Dates: start: 2006
  237. INSULIN HUMAN [Suspect]
     Active Substance: INSULIN HUMAN
     Indication: Toxic epidermal necrolysis
     Dosage: UNK, SOLUTION FOR INFUSION
     Route: 042
  238. INSULIN HUMAN [Suspect]
     Active Substance: INSULIN HUMAN
     Indication: Pneumonia
     Dosage: UNK
     Route: 065
  239. INSULIN HUMAN [Suspect]
     Active Substance: INSULIN HUMAN
     Indication: Product used for unknown indication
     Dosage: 50 UNITS/50 ML
     Route: 042
     Dates: start: 2006
  240. INSULIN HUMAN [Suspect]
     Active Substance: INSULIN HUMAN
     Dosage: 50 UNITS/50 ML
     Route: 042
     Dates: start: 2006
  241. INSULIN HUMAN [Suspect]
     Active Substance: INSULIN HUMAN
     Dosage: UNK
     Route: 042
     Dates: start: 2006
  242. INSULIN HUMAN [Suspect]
     Active Substance: INSULIN HUMAN
     Dosage: UNK
     Route: 042
     Dates: start: 2006
  243. INSULIN HUMAN [Suspect]
     Active Substance: INSULIN HUMAN
     Dosage: 50 UNITS/50 ML
     Route: 042
     Dates: start: 2006
  244. RIBOFLAVIN [Suspect]
     Active Substance: RIBOFLAVIN
     Indication: Ill-defined disorder
     Dosage: UNK
     Route: 065
  245. NICOTINAMIDE [Suspect]
     Active Substance: NIACINAMIDE
     Indication: Ill-defined disorder
     Dosage: UNK
     Route: 065
  246. POTASSIUM PHOSPHATE, MONOBASIC [Suspect]
     Active Substance: POTASSIUM PHOSPHATE, MONOBASIC
     Indication: Ill-defined disorder
     Dosage: UNK
     Route: 065
     Dates: start: 2006
  247. POTASSIUM PHOSPHATE, MONOBASIC [Suspect]
     Active Substance: POTASSIUM PHOSPHATE, MONOBASIC
     Indication: Pneumonia
     Dosage: UNK
     Route: 065
     Dates: start: 2006
  248. MAGNESIUM HYDROXIDE [Suspect]
     Active Substance: MAGNESIUM HYDROXIDE
     Indication: Ill-defined disorder
     Dosage: UNK
     Route: 065
  249. MAGNESIUM HYDROXIDE [Suspect]
     Active Substance: MAGNESIUM HYDROXIDE
     Dosage: UNK, (10ML/50% 8MMOLS/50MLS)
     Route: 061
     Dates: start: 2006
  250. POTASSIUM IODIDE [Suspect]
     Active Substance: POTASSIUM IODIDE
     Indication: Pneumonia
     Dosage: UNK
     Route: 065
     Dates: start: 2006
  251. POTASSIUM [Suspect]
     Active Substance: POTASSIUM
     Indication: Product used for unknown indication
     Dosage: 6 DOSAGE FORM, QD
     Route: 065
  252. POTASSIUM [Suspect]
     Active Substance: POTASSIUM
     Dosage: 2 DOSAGE FORM, TID
     Route: 065
     Dates: start: 2006
  253. SILVER SULFADIAZINE [Suspect]
     Active Substance: SILVER SULFADIAZINE
     Indication: Ill-defined disorder
     Dosage: UNK
     Route: 061
  254. SILVER SULFADIAZINE [Suspect]
     Active Substance: SILVER SULFADIAZINE
     Indication: Pneumonia
     Dosage: UNK
     Route: 061
     Dates: start: 2006
  255. SILVER SULFADIAZINE [Suspect]
     Active Substance: SILVER SULFADIAZINE
     Dosage: UNK
     Route: 061
     Dates: start: 2006
  256. SULFADIAZINE [Suspect]
     Active Substance: SULFADIAZINE
     Indication: Ill-defined disorder
     Dosage: UNK
     Route: 061
  257. SULFADIAZINE [Suspect]
     Active Substance: SULFADIAZINE
     Dosage: UNK
     Route: 061
     Dates: start: 2006
  258. CANRENOIC ACID [Suspect]
     Active Substance: CANRENOIC ACID
     Indication: Ill-defined disorder
     Dosage: UNK
     Route: 065
  259. THIAMINE MONONITRATE [Suspect]
     Active Substance: THIAMINE MONONITRATE
     Indication: Pneumonia
     Dosage: UNK
     Route: 065
  260. THIAMINE MONONITRATE [Suspect]
     Active Substance: THIAMINE MONONITRATE
     Indication: Ill-defined disorder
     Dosage: 100 MILLIGRAM, QD
     Route: 048
     Dates: start: 2006
  261. ASPIRIN [Suspect]
     Active Substance: ASPIRIN
     Indication: Ill-defined disorder
     Dosage: UNK
     Route: 048
  262. AMOXICILLIN TRIHYDRATE [Suspect]
     Active Substance: AMOXICILLIN
     Indication: Pneumonia
     Dosage: UNK, CAPSULE, HARD
     Route: 065
  263. AMOXICILLIN TRIHYDRATE [Suspect]
     Active Substance: AMOXICILLIN
     Dosage: 1 GRAM, TID, CAPSULE HARD
     Route: 042
  264. AMOXICILLIN TRIHYDRATE [Suspect]
     Active Substance: AMOXICILLIN
     Dosage: 1 GRAM, TID (EVERY 8 HOURS)
     Route: 042
  265. AMOXICILLIN TRIHYDRATE [Suspect]
     Active Substance: AMOXICILLIN
     Dosage: 250 MILLIGRAM,TID CAPSULE HARD
     Route: 048
     Dates: start: 20060913
  266. AMOXICILLIN TRIHYDRATE [Suspect]
     Active Substance: AMOXICILLIN
     Dosage: 250 MILLIGRAM,TID POWDER FOR INJECTION
     Route: 042
     Dates: start: 20060913
  267. AMOXICILLIN TRIHYDRATE [Suspect]
     Active Substance: AMOXICILLIN
     Dosage: 250 MILLIGRAM, QD CAPSULE HARD
     Route: 048
     Dates: start: 20060913
  268. AMOXICILLIN TRIHYDRATE [Suspect]
     Active Substance: AMOXICILLIN
     Dosage: 3 GRAM, QD POWDER FOR INJECTION
     Route: 042
     Dates: start: 20060913
  269. AMOXICILLIN TRIHYDRATE [Suspect]
     Active Substance: AMOXICILLIN
     Dosage: 3 GRAM, TID POWDER FOR INJECTION
     Route: 042
     Dates: start: 20060913
  270. CITRIC ACID [Suspect]
     Active Substance: CITRIC ACID MONOHYDRATE
     Indication: Pneumonia
     Dosage: 100 MILLIGRAM, QD
     Route: 065
  271. CITRIC ACID [Suspect]
     Active Substance: CITRIC ACID MONOHYDRATE
     Indication: Ill-defined disorder
     Dosage: 100 MILLIGRAM, QD
     Route: 065
     Dates: start: 2006
  272. CALCIUM CHLORIDE [Suspect]
     Active Substance: CALCIUM CHLORIDE
     Indication: Ill-defined disorder
     Dosage: UNK, QD
     Route: 042
  273. CALCIUM CHLORIDE [Suspect]
     Active Substance: CALCIUM CHLORIDE
     Indication: Pneumonia
     Dosage: 120 DOSAGE FORM (10 ML,UNK (DAILY DOSE: 10 MILLILITRE(S))
     Route: 042
     Dates: start: 2006
  274. POTASSIUM PHOSPHATE, MONOBASIC [Suspect]
     Active Substance: POTASSIUM PHOSPHATE, MONOBASIC
     Indication: Pneumonia
     Dosage: UNK
     Route: 065
     Dates: start: 2006
  275. ERYTHROMYCIN STEARATE [Suspect]
     Active Substance: ERYTHROMYCIN STEARATE
     Indication: Ill-defined disorder
     Dosage: UNK
     Route: 065
  276. SODIUM BICARBONATE [Suspect]
     Active Substance: SODIUM BICARBONATE
     Indication: Pneumonia
     Dosage: 100 MILLILITER, EVERY HOUR
     Route: 042
  277. SODIUM BICARBONATE [Suspect]
     Active Substance: SODIUM BICARBONATE
     Indication: Ill-defined disorder
     Dosage: 100 MILLIGRAM, EVERY WEEKLY
     Route: 065
  278. SODIUM BICARBONATE [Suspect]
     Active Substance: SODIUM BICARBONATE
     Dosage: 100 MILLIGRAM, EVERY HOUR
     Route: 042
     Dates: start: 2006
  279. SODIUM BICARBONATE [Suspect]
     Active Substance: SODIUM BICARBONATE
     Dosage: 10 MILLILITER, EVERY HOUR
     Route: 042
     Dates: start: 2006
  280. SODIUM BICARBONATE [Suspect]
     Active Substance: SODIUM BICARBONATE
     Dosage: 200 MILLIGRAM, EVERY WEEK
     Route: 042
     Dates: start: 2006
  281. TINZAPARIN [Suspect]
     Active Substance: TINZAPARIN
     Indication: Pneumonia
     Dosage: UNK, QD
     Route: 065
  282. TINZAPARIN [Suspect]
     Active Substance: TINZAPARIN
     Indication: Ill-defined disorder
     Dosage: 3500 MCG, QD
     Route: 065
     Dates: start: 2006
  283. TINZAPARIN [Suspect]
     Active Substance: TINZAPARIN
     Dosage: 3500 MCG, QD
     Route: 065
     Dates: start: 2006
  284. TINZAPARIN [Suspect]
     Active Substance: TINZAPARIN
     Dosage: 3500 MCG, QD (3500 UG, QD, STRUCTURE DOSAGE UNIT REPORTED AS AMCLMICROLITRE(S))
     Route: 065
     Dates: start: 2006
  285. TINZAPARIN [Suspect]
     Active Substance: TINZAPARIN
     Dosage: 3500 MCG, QD (3500 UG, QD, STRUCTURE DOSAGE UNIT REPORTED AS AMCLMICROLITRE(S))
     Route: 065
     Dates: start: 2006
  286. TINZAPARIN [Suspect]
     Active Substance: TINZAPARIN
     Dosage: 3500 MCG, QD (3500 UG, QD, STRUCTURE DOSAGE UNIT REPORTED AS AMCLMICROLITRE(S))
     Route: 065
     Dates: start: 2006
  287. HEPARIN [Suspect]
     Active Substance: HEPARIN SODIUM
     Indication: Ill-defined disorder
     Dosage: 3500 MICROGRAM, QD
     Route: 065
  288. CIPROFLOXACIN HYDROCHLORIDE [Suspect]
     Active Substance: CIPROFLOXACIN HYDROCHLORIDE
     Indication: Ill-defined disorder
     Dosage: UNK
     Route: 065
  289. CIPROFLOXACIN HYDROCHLORIDE [Suspect]
     Active Substance: CIPROFLOXACIN HYDROCHLORIDE
     Dosage: 400 MILLIGRAM, QD
     Route: 042
  290. FUROSEMIDE [Suspect]
     Active Substance: FUROSEMIDE
     Indication: Pneumonia
     Dosage: 40 MILLIGRAM, QD
     Route: 042
  291. FUROSEMIDE [Suspect]
     Active Substance: FUROSEMIDE
     Dosage: 20 MILLIGRAM, QD
     Route: 042
     Dates: start: 2006
  292. THIAMINE HYDROCHLORIDE [Suspect]
     Active Substance: THIAMINE HYDROCHLORIDE
     Indication: Pneumonia
     Dosage: 100 MILLIGRAM, QD
     Route: 042
  293. THIAMINE HYDROCHLORIDE [Suspect]
     Active Substance: THIAMINE HYDROCHLORIDE
     Dosage: 100 MILLIGRAM, QD
     Route: 048
     Dates: start: 2006
  294. VITAMIN K [Suspect]
     Active Substance: PHYTONADIONE
     Indication: Ill-defined disorder
     Dosage: UNK (50 UNITS/50ML)
     Route: 042
     Dates: start: 2006
  295. MIDODRINE HYDROCHLORIDE [Suspect]
     Active Substance: MIDODRINE HYDROCHLORIDE
     Indication: Product used for unknown indication
     Dosage: UNK
     Route: 065
  296. AMOXICILLIN [Concomitant]
     Active Substance: AMOXICILLIN
     Indication: Product used for unknown indication
     Dosage: 250 MILLIGRAM, UNK
     Route: 048
     Dates: start: 20060913
  297. ATROVENT [Concomitant]
     Active Substance: IPRATROPIUM BROMIDE
     Indication: Ill-defined disorder
     Dosage: 1 DOSAGE FORM, PRN
     Route: 048
  298. AMOXICILLIN\CLAVULANIC ACID [Concomitant]
     Active Substance: AMOXICILLIN\CLAVULANIC ACID
     Indication: Product used for unknown indication
     Dosage: 375 MILLIGRAM, TID
     Route: 065
     Dates: start: 20060913
  299. PIPERACILLIN SODIUM\TAZOBACTAM SODIUM [Concomitant]
     Active Substance: PIPERACILLIN SODIUM\TAZOBACTAM SODIUM
     Indication: Ill-defined disorder
     Dosage: 4.5 GRAM, QID
     Route: 042
     Dates: start: 20061004, end: 20061009
  300. PIPERACILLIN SODIUM\TAZOBACTAM SODIUM [Concomitant]
     Active Substance: PIPERACILLIN SODIUM\TAZOBACTAM SODIUM
     Indication: Product used for unknown indication
     Dosage: 13.5 GRAM, QD
     Route: 042
     Dates: start: 2006
  301. PIPERACILLIN SODIUM\TAZOBACTAM SODIUM [Concomitant]
     Active Substance: PIPERACILLIN SODIUM\TAZOBACTAM SODIUM
     Dosage: 13.5 GRAM, QD
     Route: 065
  302. PIPERACILLIN SODIUM\TAZOBACTAM SODIUM [Concomitant]
     Active Substance: PIPERACILLIN SODIUM\TAZOBACTAM SODIUM
     Dosage: 54 GRAM, TID
     Route: 042
     Dates: start: 20061004, end: 20061009
  303. PIPERACILLIN SODIUM\TAZOBACTAM SODIUM [Concomitant]
     Active Substance: PIPERACILLIN SODIUM\TAZOBACTAM SODIUM
     Dosage: 4.5 GRAM, QID
     Route: 042
     Dates: start: 2006
  304. PIPERACILLIN SODIUM\TAZOBACTAM SODIUM [Concomitant]
     Active Substance: PIPERACILLIN SODIUM\TAZOBACTAM SODIUM
     Dosage: 4.5 GRAM, QID
     Route: 042
     Dates: start: 20061004, end: 20061009
  305. PIPERACILLIN SODIUM\TAZOBACTAM SODIUM [Concomitant]
     Active Substance: PIPERACILLIN SODIUM\TAZOBACTAM SODIUM
     Dosage: 5 GRAM, 1 DOSE 6 HOURS
     Route: 065
     Dates: start: 20060410, end: 20060910
  306. PIPERACILLIN SODIUM\TAZOBACTAM SODIUM [Concomitant]
     Active Substance: PIPERACILLIN SODIUM\TAZOBACTAM SODIUM
     Dosage: 54 GRAM, TID
     Route: 042
     Dates: start: 20061004, end: 20061009
  307. PIPERACILLIN SODIUM\TAZOBACTAM SODIUM [Concomitant]
     Active Substance: PIPERACILLIN SODIUM\TAZOBACTAM SODIUM
     Dosage: 72 GRAM, QD
     Route: 042
     Dates: start: 20061004, end: 20061009
  308. PIPERACILLIN SODIUM\TAZOBACTAM SODIUM [Concomitant]
     Active Substance: PIPERACILLIN SODIUM\TAZOBACTAM SODIUM
     Dosage: 18 GRAM, QD
     Route: 042
     Dates: start: 20061004, end: 20061009
  309. PIPERACILLIN SODIUM\TAZOBACTAM SODIUM [Concomitant]
     Active Substance: PIPERACILLIN SODIUM\TAZOBACTAM SODIUM
     Dosage: 18 GRAM, QD
     Route: 042
     Dates: start: 20061004, end: 20061009
  310. ASPIRIN [Concomitant]
     Active Substance: ASPIRIN
     Indication: Ill-defined disorder
     Dosage: UNK
     Route: 048
  311. ASPIRIN [Concomitant]
     Active Substance: ASPIRIN
     Dosage: UNK
     Route: 048
  312. CLAVULANATE POTASSIUM [Concomitant]
     Active Substance: CLAVULANATE POTASSIUM
     Indication: Product used for unknown indication
     Dosage: 250 MILLIGRAM, UNK
     Route: 048
  313. CLAVULANATE POTASSIUM [Concomitant]
     Active Substance: CLAVULANATE POTASSIUM
     Dosage: 875 MILLIGRAM, QD
     Route: 065
     Dates: start: 20060913
  314. CLAVULANATE POTASSIUM [Concomitant]
     Active Substance: CLAVULANATE POTASSIUM
     Dosage: 2625 MILLIGRAM, QD
     Route: 065
     Dates: start: 20060913
  315. CLAVULANATE POTASSIUM [Concomitant]
     Active Substance: CLAVULANATE POTASSIUM
     Dosage: 375 MILLIGRAM, TID
     Route: 065
     Dates: start: 20060913
  316. CLAVULANATE POTASSIUM [Concomitant]
     Active Substance: CLAVULANATE POTASSIUM
     Dosage: 1125 MILLIGRAM, QD
     Route: 065
     Dates: start: 20060913
  317. ASPIRIN [Concomitant]
     Active Substance: ASPIRIN
     Indication: Ill-defined disorder
     Dosage: UNK
     Route: 048
  318. CHLORPHENIRAMINE [Concomitant]
     Active Substance: CHLORPHENIRAMINE
     Indication: Toxic epidermal necrolysis
     Dosage: 40 MILLIGRAM, QD
     Route: 042
  319. CIPROFLOXACIN [Concomitant]
     Active Substance: CIPROFLOXACIN
     Indication: Ill-defined disorder
     Dosage: 400 MILLIGRAM, QD
     Route: 042
  320. CIPROFLOXACIN [Concomitant]
     Active Substance: CIPROFLOXACIN
     Dosage: 400 MILLIGRAM, QD
     Route: 042
  321. CIPROFLOXACIN [Concomitant]
     Active Substance: CIPROFLOXACIN
     Dosage: 400 MILLIGRAM, QD
     Route: 042
  322. CIPROFLOXACIN [Concomitant]
     Active Substance: CIPROFLOXACIN
     Dosage: 400 MILLIGRAM, QD
     Route: 042
  323. CIPROFLOXACIN [Concomitant]
     Active Substance: CIPROFLOXACIN
     Dosage: 400 MILLIGRAM, QD
     Route: 042
  324. PANTOPRAZOLE [Concomitant]
     Active Substance: PANTOPRAZOLE
     Indication: Ill-defined disorder
     Dosage: 40 MILLIGRAM, UNK
     Route: 042
  325. PANTOPRAZOLE [Concomitant]
     Active Substance: PANTOPRAZOLE
     Dosage: 40 MILLIGRAM, UNK
     Route: 042
  326. AMOXICILLIN\CLAVULANATE POTASSIUM [Concomitant]
     Active Substance: AMOXICILLIN\CLAVULANATE POTASSIUM
     Indication: Ill-defined disorder
     Dosage: 250 MILLIGRAM
     Route: 048
  327. AMOXICILLIN\CLAVULANATE POTASSIUM [Concomitant]
     Active Substance: AMOXICILLIN\CLAVULANATE POTASSIUM
     Dosage: 250 MILLIGRAM
     Route: 065
  328. AMOXICILLIN\CLAVULANATE POTASSIUM [Concomitant]
     Active Substance: AMOXICILLIN\CLAVULANATE POTASSIUM
     Dosage: 375 MILLIGRAM, TID
     Route: 065
     Dates: start: 20060913
  329. AMOXICILLIN\CLAVULANATE POTASSIUM [Concomitant]
     Active Substance: AMOXICILLIN\CLAVULANATE POTASSIUM
     Dosage: 2625 MILLIGRAM, QD
     Route: 065
     Dates: start: 20060913
  330. AMOXICILLIN\CLAVULANATE POTASSIUM [Concomitant]
     Active Substance: AMOXICILLIN\CLAVULANATE POTASSIUM
     Dosage: 250 MILLIGRAM
     Route: 048
  331. ERYTHROMYCIN [Concomitant]
     Active Substance: ERYTHROMYCIN
     Indication: Ill-defined disorder
     Dosage: 250 MILLIGRAM
     Route: 050
  332. ERYTHROMYCIN [Concomitant]
     Active Substance: ERYTHROMYCIN
     Dosage: 250 MILLIGRAM
     Route: 050
  333. ERYTHROMYCIN [Concomitant]
     Active Substance: ERYTHROMYCIN
     Dosage: 25 MILLIGRAM, NASOGASTRIC ROUTE
     Route: 065
  334. ERYTHROMYCIN [Concomitant]
     Active Substance: ERYTHROMYCIN
     Dosage: 250 MILLIGRAM2, NASOGASTRIC ROUTE
     Route: 050
  335. IPRATROPIUM BROMIDE [Concomitant]
     Active Substance: IPRATROPIUM BROMIDE
     Indication: Product used for unknown indication
     Dosage: UNK
     Route: 065
  336. VANCOMYCIN [Concomitant]
     Active Substance: VANCOMYCIN
     Indication: Ill-defined disorder
     Dosage: 1 GRAM, QD (DAILY)
     Route: 042
  337. TRICLOSAN [Concomitant]
     Active Substance: TRICLOSAN
     Indication: Ill-defined disorder
     Dosage: 1 GRAM, QD
     Route: 042
  338. ZOPICLONE [Concomitant]
     Active Substance: ZOPICLONE
     Indication: Ill-defined disorder
     Dosage: UNK
     Route: 048
  339. METOCLOPRAMIDE [Concomitant]
     Active Substance: METOCLOPRAMIDE
     Indication: Ill-defined disorder
     Dosage: 10 MILLIGRAM, UNK
     Route: 042
  340. METOCLOPRAMIDE [Concomitant]
     Active Substance: METOCLOPRAMIDE
     Dosage: 10 MILLIGRAM
     Route: 042
  341. MIDODRINE [Concomitant]
     Active Substance: MIDODRINE
     Indication: Ill-defined disorder
     Dosage: UNK
     Route: 048
  342. CIPROFLOXACIN HYDROCHLORIDE [Concomitant]
     Active Substance: CIPROFLOXACIN HYDROCHLORIDE
     Indication: Ill-defined disorder
     Dosage: 400 MILLIGRAM, QD
     Route: 042
  343. CIPROFLOXACIN LACTATE [Concomitant]
     Active Substance: CIPROFLOXACIN LACTATE
     Indication: Ill-defined disorder
     Dosage: 400 MILLIGRAM, QD
     Route: 042

REACTIONS (4)
  - Toxic epidermal necrolysis [Unknown]
  - Drug hypersensitivity [Unknown]
  - Product use in unapproved indication [Unknown]
  - Off label use [Unknown]

NARRATIVE: CASE EVENT DATE: 20060101
